FAERS Safety Report 11721068 (Version 1)
Quarter: 2015Q4

REPORT INFORMATION
  Report Type: Spontaneous
  Country: US (occurrence: US)
  Receive Date: 20151110
  Receipt Date: 20151110
  Transmission Date: 20160304
  Serious: No
  Sender: FDA-Public Use
  Company Number: US-SA-2015SA172208

PATIENT
  Age: 54 Year
  Sex: Female

DRUGS (8)
  1. POTASSIUM CITRATE. [Concomitant]
     Active Substance: POTASSIUM CITRATE
  2. PRALUENT [Suspect]
     Active Substance: ALIROCUMAB
     Indication: TYPE V HYPERLIPIDAEMIA
     Route: 065
     Dates: start: 20150930
  3. PRALUENT [Suspect]
     Active Substance: ALIROCUMAB
     Indication: CORONARY ANGIOPLASTY
     Route: 065
     Dates: start: 20150930
  4. RANEXA [Concomitant]
     Active Substance: RANOLAZINE
  5. OMEGA 3 [Concomitant]
     Active Substance: OMEGA-3 FATTY ACIDS
  6. AMBIEN [Concomitant]
     Active Substance: ZOLPIDEM TARTRATE
  7. ALIROCUMAB PREFILLED PEN [Concomitant]
     Dates: start: 20150930
  8. PLAVIX [Concomitant]
     Active Substance: CLOPIDOGREL BISULFATE

REACTIONS (3)
  - Nasal congestion [Unknown]
  - Headache [Unknown]
  - Dry skin [Unknown]

NARRATIVE: CASE EVENT DATE: 20151022
